FAERS Safety Report 17544974 (Version 6)
Quarter: 2023Q1

REPORT INFORMATION
  Report Type: Spontaneous
  Country: US (occurrence: US)
  Receive Date: 20200316
  Receipt Date: 20230227
  Transmission Date: 20230417
  Serious: Yes (Other)
  Sender: FDA-Public Use
  Company Number: US-PFIZER INC-2020113645

PATIENT
  Age: 58 Year
  Sex: Female

DRUGS (2)
  1. XELJANZ XR [Suspect]
     Active Substance: TOFACITINIB CITRATE
     Dosage: 11 MG
     Dates: start: 20190101
  2. XELJANZ XR [Suspect]
     Active Substance: TOFACITINIB CITRATE
     Dosage: UNK
     Dates: start: 20190901

REACTIONS (10)
  - Pericarditis [Unknown]
  - Myocarditis [Unknown]
  - Drug ineffective [Unknown]
  - Product dose omission issue [Unknown]
  - Joint stiffness [Unknown]
  - Headache [Not Recovered/Not Resolved]
  - Bone density decreased [Unknown]
  - Hepatic enzyme increased [Unknown]
  - Arthralgia [Not Recovered/Not Resolved]
  - Respiratory disorder [Unknown]

NARRATIVE: CASE EVENT DATE: 20200701
